FAERS Safety Report 16655440 (Version 1)
Quarter: 2019Q3

REPORT INFORMATION
  Report Type: Spontaneous
  Country: CH (occurrence: CH)
  Receive Date: 20190801
  Receipt Date: 20190801
  Transmission Date: 20191004
  Serious: Yes (Death)
  Sender: FDA-Public Use
  Company Number: CH-TEVA-2019-CH-1085805

PATIENT
  Sex: Female
  Weight: 63 kg

DRUGS (9)
  1. DAFLON 500 [Concomitant]
     Active Substance: DIOSMIN\HESPERIDIN
     Indication: SWELLING
     Dosage: 500 MILLIGRAM DAILY;
     Route: 048
     Dates: start: 20171120
  2. GELODURAT [Concomitant]
     Indication: BRONCHIECTASIS
     Dosage: 600 MILLIGRAM DAILY;
     Route: 048
     Dates: start: 20160630
  3. VIDE3 TR. 10 ML [Concomitant]
     Indication: OSTEOPOROSIS
     Route: 048
     Dates: start: 20160620
  4. CONDROSULF 800 TABL. [Concomitant]
     Indication: OSTEOARTHRITIS
     Dosage: 800 MILLIGRAM DAILY;
     Route: 048
     Dates: start: 20170315
  5. ARCOXIA 60 [Concomitant]
     Indication: PAIN
     Dosage: 60 MILLIGRAM DAILY;
     Route: 048
     Dates: start: 20180201
  6. PULMICORT 400 TURBUHALER [Concomitant]
     Indication: ASTHMA
     Dosage: 800 MICROGRAM DAILY;
     Route: 055
     Dates: start: 20170630
  7. GABAPENTIN MEPHA [Suspect]
     Active Substance: GABAPENTIN
     Indication: POLYNEUROPATHY
     Dosage: 1800 MILLIGRAM DAILY;
     Route: 048
     Dates: start: 20141209
  8. RHINOCORT 100 TURBUHALER [Concomitant]
     Indication: RHINITIS
     Dosage: 100 MICROGRAM DAILY;
     Route: 055
     Dates: start: 20160625
  9. SPIRIVA [Concomitant]
     Active Substance: TIOTROPIUM BROMIDE MONOHYDRATE
     Indication: ASTHMA
     Dosage: 18 MICROGRAM DAILY;
     Route: 055
     Dates: start: 20160615

REACTIONS (1)
  - Completed suicide [Fatal]
